FAERS Safety Report 6983220-1 (Version None)
Quarter: 2010Q3

REPORT INFORMATION
  Report Type: 
  Country: None (occurrence: None)
  Receive Date: 20100914
  Receipt Date: 20100715
  Transmission Date: 20110219
  Serious: Yes (Other)
  Sender: FDA-Public Use
  Company Number: US-PFIZER INC-2010089091

PATIENT
  Sex: Female

DRUGS (5)
  1. LYRICA [Suspect]
     Indication: FIBROMYALGIA
     Dosage: 75 MG, 1X/DAY
     Dates: start: 20100101
  2. CYMBALTA [Suspect]
     Indication: FIBROMYALGIA
     Dosage: UNK
     Dates: start: 20100101
  3. SYNTHROID [Concomitant]
  4. LEXAPRO [Concomitant]
     Dates: start: 20100101, end: 20100101
  5. MOBIC [Concomitant]
     Dosage: UNK
     Dates: start: 20100101

REACTIONS (6)
  - DEPRESSION [None]
  - FEELING ABNORMAL [None]
  - HYPERHIDROSIS [None]
  - IMPAIRED WORK ABILITY [None]
  - MYALGIA [None]
  - SOMNOLENCE [None]
